FAERS Safety Report 6257977-1 (Version None)
Quarter: 2009Q3

REPORT INFORMATION
  Report Type: 
  Country: None (occurrence: None)
  Receive Date: 20090707
  Receipt Date: 20090624
  Transmission Date: 20100115
  Serious: Yes (Hospitalization)
  Sender: FDA-Public Use
  Company Number: FR-ELI_LILLY_AND_COMPANY-FR200906005921

PATIENT
  Sex: Male
  Weight: 65 kg

DRUGS (7)
  1. GEMCITABINE HCL [Suspect]
     Indication: NON-SMALL CELL LUNG CANCER
     Dosage: 1250 MG/M2, DAYS 1 AND EIGHT
     Route: 042
  2. CISPLATIN [Suspect]
     Indication: NON-SMALL CELL LUNG CANCER
     Dosage: 80 MG/M2, DAY ONE
     Route: 042
  3. TARCEVA [Suspect]
     Indication: NON-SMALL CELL LUNG CANCER
     Dosage: 150 MG, DAILY (1/D)
     Route: 048
     Dates: start: 20090324
  4. TOLEXINE [Concomitant]
     Dosage: 100 MG, DAILY (1/D)
     Dates: start: 20090323
  5. DEXERYL /00557601/ [Concomitant]
     Dosage: UNK, 2/D
     Dates: start: 20090323
  6. CELLUVISC [Concomitant]
     Dosage: 6 TIMES DAILY
     Dates: start: 20090323
  7. PREVISCAN [Concomitant]
     Indication: PHLEBITIS
     Dosage: HALF TABLET DAILY

REACTIONS (5)
  - ABSCESS [None]
  - ACNE [None]
  - ANAEMIA [None]
  - CONJUNCTIVITIS [None]
  - GENERAL PHYSICAL HEALTH DETERIORATION [None]
